FAERS Safety Report 25273150 (Version 1)
Quarter: 2025Q2

REPORT INFORMATION
  Report Type: Spontaneous
  Country: US (occurrence: US)
  Receive Date: 20250506
  Receipt Date: 20250506
  Transmission Date: 20250717
  Serious: No
  Sender: BAYER HEALTHCARE PHARMACEUTICALS INC.
  Company Number: US-BAYER-2025A056368

PATIENT
  Sex: Female

DRUGS (3)
  1. SKYLA [Suspect]
     Active Substance: LEVONORGESTREL
     Indication: Intra-uterine contraceptive device insertion
     Dosage: 14?G/DAY
     Route: 015
     Dates: start: 202309
  2. TALTZ [Concomitant]
     Active Substance: IXEKIZUMAB
  3. BIMZELX [Concomitant]
     Active Substance: BIMEKIZUMAB-BKZX

REACTIONS (1)
  - Inflammation [None]
